FAERS Safety Report 11123547 (Version 1)
Quarter: 2015Q2

REPORT INFORMATION
  Report Type: Spontaneous
  Country: SE (occurrence: SE)
  Receive Date: 20150519
  Receipt Date: 20150519
  Transmission Date: 20150821
  Serious: Yes (Other)
  Sender: FDA-Public Use
  Company Number: SE-BAXTER-2015BAX025728

PATIENT
  Age: 47 Year
  Sex: Male

DRUGS (1)
  1. FEIBA [Suspect]
     Active Substance: ANTI-INHIBITOR COAGULANT COMPLEX
     Indication: HAEMOPHILIA A WITH ANTI FACTOR VIII
     Dosage: 6000E X 2-3
     Route: 042
     Dates: start: 20150415

REACTIONS (1)
  - Fibrinolysis [Recovered/Resolved]

NARRATIVE: CASE EVENT DATE: 20150425
